FAERS Safety Report 19862842 (Version 1)
Quarter: 2021Q3

REPORT INFORMATION
  Report Type: Spontaneous
  Country: IT (occurrence: IT)
  Receive Date: 20210921
  Receipt Date: 20210921
  Transmission Date: 20211014
  Serious: Yes (Other)
  Sender: FDA-Public Use
  Company Number: IT-PFIZER INC-202101175292

PATIENT
  Age: 43 Year
  Sex: Female

DRUGS (3)
  1. PACLITAXEL. [Suspect]
     Active Substance: PACLITAXEL
     Indication: TRIPLE POSITIVE BREAST CANCER
     Dosage: 2340 MG/M2, CYCLIC [FREQ:9 {CYCLICAL};260 MG/M2 EVERY THREE WEEKS (9 COURSES)]
     Dates: start: 201907, end: 201912
  2. GRANULOCYTE COLONY STIMULATING FACTOR [Concomitant]
     Active Substance: GRANULOCYTE COLONY-STIMULATING FACTOR NOS
     Indication: PROPHYLAXIS
     Dosage: UNK
  3. TRASTUZUMAB. [Suspect]
     Active Substance: TRASTUZUMAB
     Indication: TRIPLE POSITIVE BREAST CANCER
     Dosage: UNK, CYCLIC (EVERY THREE WEEKS WITH PRIMARY PROPHYLAXIS WITH G?CSF (9 COURSES))
     Dates: start: 201907, end: 201912

REACTIONS (2)
  - Hepatotoxicity [Unknown]
  - Hypertransaminasaemia [Unknown]

NARRATIVE: CASE EVENT DATE: 2019
